FAERS Safety Report 15031023 (Version 5)
Quarter: 2018Q3

REPORT INFORMATION
  Report Type: Report from Study
  Country: US (occurrence: US)
  Receive Date: 20180619
  Receipt Date: 20180822
  Transmission Date: 20181010
  Serious: Yes (Other)
  Sender: FDA-Public Use
  Company Number: US-ACTELION-A-US2018-173938

PATIENT
  Age: 70 Year
  Sex: Female
  Weight: 68.27 kg

DRUGS (11)
  1. OXYGEN. [Concomitant]
     Active Substance: OXYGEN
  2. PEPCID [Concomitant]
     Active Substance: FAMOTIDINE
  3. OPSUMIT [Suspect]
     Active Substance: MACITENTAN
     Indication: VENTILATION PERFUSION MISMATCH
  4. LASIX [Concomitant]
     Active Substance: FUROSEMIDE
  5. MULTIVITAMIN [Concomitant]
     Active Substance: VITAMINS
  6. WARFARIN [Concomitant]
     Active Substance: WARFARIN
  7. COENZYME Q10 [Concomitant]
     Active Substance: UBIDECARENONE
  8. ADEMPAS [Concomitant]
     Active Substance: RIOCIGUAT
     Dosage: 25 MG, TID
     Route: 048
     Dates: start: 201708
  9. MELATONIN [Concomitant]
     Active Substance: MELATONIN
  10. DIGOXIN. [Concomitant]
     Active Substance: DIGOXIN
  11. OPSUMIT [Suspect]
     Active Substance: MACITENTAN
     Indication: PULMONARY ARTERIAL HYPERTENSION
     Dosage: 10 MG, QD
     Route: 048
     Dates: start: 20180501, end: 20180618

REACTIONS (10)
  - Leukaemia [Unknown]
  - Dizziness [Unknown]
  - Condition aggravated [Unknown]
  - Insomnia [Unknown]
  - Dyspnoea [Unknown]
  - Unevaluable event [Unknown]
  - Hypoxia [Unknown]
  - Heart rate increased [Unknown]
  - Endarterectomy [Unknown]
  - Blood pressure decreased [Unknown]

NARRATIVE: CASE EVENT DATE: 20180613
